FAERS Safety Report 24021742 (Version 1)
Quarter: 2024Q2

REPORT INFORMATION
  Report Type: Report from Study
  Country: CA (occurrence: CA)
  Receive Date: 20240627
  Receipt Date: 20240627
  Transmission Date: 20240716
  Serious: Yes (Hospitalization)
  Sender: FDA-Public Use
  Company Number: CA-C0168Z03-7013-13619

PATIENT
  Age: 58 Year
  Sex: Male
  Weight: 108.96 kg

DRUGS (1)
  1. REMICADE [Suspect]
     Active Substance: INFLIXIMAB
     Indication: Psoriasis
     Route: 041
     Dates: start: 20120322, end: 20120703

REACTIONS (4)
  - Internal hernia [Recovered/Resolved]
  - Small intestinal obstruction [Recovered/Resolved]
  - Drug ineffective [Unknown]
  - Body tinea [Unknown]

NARRATIVE: CASE EVENT DATE: 20120701
